FAERS Safety Report 9788032 (Version 2)
Quarter: 2014Q1

REPORT INFORMATION
  Report Type: Spontaneous
  Country: IT (occurrence: IT)
  Receive Date: 20131230
  Receipt Date: 20140116
  Transmission Date: 20141002
  Serious: Yes (Other)
  Sender: FDA-Public Use
  Company Number: IT-SA-2013SA132862

PATIENT
  Age: 92 Year
  Sex: Female

DRUGS (8)
  1. LASIX [Suspect]
     Indication: HYPERTENSION
     Route: 048
     Dates: start: 20130801, end: 20131029
  2. CARDURA [Suspect]
     Indication: HYPERTENSION
     Dosage: 2MG
     Route: 048
     Dates: start: 20130801, end: 20131029
  3. CARVIPRESS [Suspect]
     Indication: MYOCARDIAL ISCHAEMIA
     Dosage: 25 MG
     Route: 065
     Dates: start: 20111104, end: 20131104
  4. LANSOPRAZOLE [Concomitant]
     Route: 048
     Dates: end: 20131102
  5. ASA [Concomitant]
  6. SINVACOR [Concomitant]
  7. DEURSIL [Concomitant]
  8. TAVOR [Concomitant]

REACTIONS (2)
  - Upper limb fracture [Unknown]
  - Syncope [Recovering/Resolving]
